FAERS Safety Report 6895564-2 (Version None)
Quarter: 2010Q3

REPORT INFORMATION
  Report Type: 
  Country: None (occurrence: None)
  Receive Date: 20100802
  Receipt Date: 20100727
  Transmission Date: 20110219
  Serious: Yes (Death, Hospitalization, Other)
  Sender: FDA-Public Use
  Company Number: PHHY2010US04495

PATIENT
  Sex: Male
  Weight: 89.796 kg

DRUGS (4)
  1. EXJADE [Suspect]
     Indication: IRON OVERLOAD
     Dosage: 2500 MG DAILY
     Route: 048
     Dates: start: 20080714, end: 20100111
  2. EXJADE [Suspect]
     Dosage: 4 DF, QD
     Route: 048
  3. EXJADE [Suspect]
     Dosage: 2500 MG, DAILY
     Route: 048
  4. FLOMAX [Concomitant]
     Dosage: UNK
     Dates: start: 20080301

REACTIONS (6)
  - DEATH [None]
  - FALL [None]
  - HAEMATOCRIT DECREASED [None]
  - HAEMOGLOBIN DECREASED [None]
  - JOINT INJURY [None]
  - SYNCOPE [None]
